FAERS Safety Report 7523651-4 (Version None)
Quarter: 2011Q2

REPORT INFORMATION
  Report Type: 
  Country: None (occurrence: None)
  Receive Date: 20110601
  Receipt Date: 20110601
  Transmission Date: 20111010
  Serious: No
  Sender: FDA-Public Use
  Company Number: None

PATIENT
  Age: 28 Year
  Sex: Male
  Weight: 84.9 kg

DRUGS (1)
  1. SERTRALINE HYDROCHLORIDE [Suspect]
     Indication: POST-TRAUMATIC STRESS DISORDER
     Dosage: 50 MG EVERY DAY PO
     Route: 048
     Dates: start: 20110307, end: 20110418

REACTIONS (3)
  - HYPOMANIA [None]
  - SUICIDAL IDEATION [None]
  - DEPRESSION [None]
